FAERS Safety Report 6472495-3 (Version None)
Quarter: 2009Q4

REPORT INFORMATION
  Report Type: 
  Country: None (occurrence: None)
  Receive Date: 20091130
  Receipt Date: 20091117
  Transmission Date: 20100525
  Serious: Yes (Hospitalization)
  Sender: FDA-Public Use
  Company Number: 2009SP029551

PATIENT
  Age: 42 Year
  Sex: Male
  Weight: 84 kg

DRUGS (4)
  1. PEG-INTRON [Suspect]
     Indication: HEPATITIS C
     Dosage: 150 MCG;QW
     Dates: start: 20090531, end: 20091005
  2. REBETOL [Suspect]
     Indication: HEPATITIS C
     Dosage: 1200 MG;QD
     Dates: start: 20090531, end: 20091005
  3. METAMIZOL [Concomitant]
  4. SUBUTEX [Concomitant]

REACTIONS (11)
  - ABDOMINAL PAIN UPPER [None]
  - APPENDICITIS PERFORATED [None]
  - ARTHRALGIA [None]
  - CHILLS [None]
  - CONSTIPATION [None]
  - DECREASED APPETITE [None]
  - DEPRESSED MOOD [None]
  - GENERAL PHYSICAL HEALTH DETERIORATION [None]
  - IMPAIRED HEALING [None]
  - PERITONITIS [None]
  - PYREXIA [None]
